FAERS Safety Report 20785434 (Version 2)
Quarter: 2022Q2

REPORT INFORMATION
  Report Type: Other
  Country: CA (occurrence: CA)
  Receive Date: 20220504
  Receipt Date: 20220611
  Transmission Date: 20220720
  Serious: Yes (Other)
  Sender: FDA-Public Use
  Company Number: CA-CELLTRION INC.-2022CA005593

PATIENT

DRUGS (2)
  1. INFLIXIMAB [Suspect]
     Active Substance: INFLIXIMAB
     Indication: Crohn^s disease
     Dosage: 275 MG
     Route: 058
  2. VEDOLIZUMAB [Concomitant]
     Active Substance: VEDOLIZUMAB

REACTIONS (8)
  - Anal fissure [Unknown]
  - Anal fistula [Unknown]
  - Fistula [Unknown]
  - Weight increased [Unknown]
  - Drug level below therapeutic [Unknown]
  - Exposure to SARS-CoV-2 [Unknown]
  - Anal abscess [Unknown]
  - Off label use [Unknown]
